FAERS Safety Report 4452395-0 (Version None)
Quarter: 2004Q3

REPORT INFORMATION
  Report Type: 
  Country: None (occurrence: None)
  Receive Date: 20040917
  Receipt Date: 20040805
  Transmission Date: 20050211
  Serious: Yes (Other)
  Sender: FDA-Public Use
  Company Number: PHBS2004JP10449

PATIENT
  Age: 78 Year
  Sex: Male
  Weight: 67 kg

DRUGS (4)
  1. NEORAL [Suspect]
     Indication: APLASTIC ANAEMIA
     Dosage: 300 MG/DAY
     Route: 048
     Dates: start: 20040721, end: 20040805
  2. ATGAM [Concomitant]
     Dosage: 700 MG/D
     Route: 042
     Dates: start: 20040721, end: 20040824
  3. SOLU-MEDROL [Concomitant]
     Dosage: 120 - 80 - 40 MG/DAY
     Route: 042
     Dates: start: 20040721, end: 20040731
  4. PREDONINE [Concomitant]
     Dosage: 20 MG/DAY
     Route: 048
     Dates: start: 20040731

REACTIONS (6)
  - BLOOD BILIRUBIN INCREASED [None]
  - BLOOD LACTATE DEHYDROGENASE INCREASED [None]
  - HAEMOGLOBIN DECREASED [None]
  - HAEMOLYTIC ANAEMIA [None]
  - HAPTOGLOBIN DECREASED [None]
  - PAROXYSMAL NOCTURNAL HAEMOGLOBINURIA [None]
